FAERS Safety Report 6247765-4 (Version None)
Quarter: 2009Q2

REPORT INFORMATION
  Report Type: 
  Country: None (occurrence: None)
  Receive Date: 20090626
  Receipt Date: 20090616
  Transmission Date: 20091009
  Serious: Yes (Hospitalization)
  Sender: FDA-Public Use
  Company Number: NL-SANOFI-SYNTHELABO-S/NLALB98001

PATIENT
  Sex: Male
  Weight: 58.3 kg

DRUGS (1)
  1. XATRAL [Suspect]
     Indication: INCONTINENCE
     Route: 048
     Dates: start: 19971001, end: 19971204

REACTIONS (6)
  - DECREASED APPETITE [None]
  - ERUCTATION [None]
  - HEPATITIS CHOLESTATIC [None]
  - JAUNDICE [None]
  - PRURITUS GENERALISED [None]
  - WEIGHT DECREASED [None]
